FAERS Safety Report 11906049 (Version 1)
Quarter: 2016Q1

REPORT INFORMATION
  Report Type: Spontaneous
  Country: GB (occurrence: GB)
  Receive Date: 20160111
  Receipt Date: 20160111
  Transmission Date: 20160526
  Serious: Yes (Other)
  Sender: FDA-Public Use
  Company Number: GB-CIPLA LTD.-2015GB10048

PATIENT

DRUGS (1)
  1. ANASTROZOLE. [Suspect]
     Active Substance: ANASTROZOLE
     Indication: ENDOMETRIAL CANCER METASTATIC
     Dosage: 1 MG, QD
     Route: 065

REACTIONS (4)
  - Malignant neoplasm progression [None]
  - Endometrial cancer metastatic [None]
  - Disease progression [Unknown]
  - Arthralgia [Unknown]
